FAERS Safety Report 16207334 (Version 1)
Quarter: 2019Q2

REPORT INFORMATION
  Report Type: Spontaneous
  Country: CN (occurrence: CN)
  Receive Date: 20190417
  Receipt Date: 20190417
  Transmission Date: 20190711
  Serious: Yes (Other)
  Sender: FDA-Public Use
  Company Number: PHHY2019CN087941

PATIENT
  Age: 50 Year
  Sex: Female

DRUGS (4)
  1. GRANULOCYTE COLONY STIMULATING FACTOR [Suspect]
     Active Substance: GRANULOCYTE COLONY-STIMULATING FACTOR NOS
     Indication: MYELODYSPLASTIC SYNDROME
     Dosage: 300 UG, QD, DAYS 6-19, 5 CYCLES
     Route: 065
  2. DECITABINE. [Suspect]
     Active Substance: DECITABINE
     Indication: MYELODYSPLASTIC SYNDROME
     Dosage: 15 MG/M2, 5 CYCLES (1-5)
     Route: 042
  3. IDARUBICIN [Suspect]
     Active Substance: IDARUBICIN
     Indication: MYELODYSPLASTIC SYNDROME
     Dosage: 10 MG, QD (DAY 6), 5 CYCLES
     Route: 065
  4. CYTARABINE. [Suspect]
     Active Substance: CYTARABINE
     Indication: MYELODYSPLASTIC SYNDROME
     Dosage: 10 MG/M2, Q12H (DAYS 6-19), 5 CYCLES
     Route: 065

REACTIONS (4)
  - Bone marrow failure [Recovered/Resolved]
  - Product use in unapproved indication [Unknown]
  - Febrile neutropenia [Unknown]
  - Thrombocytopenia [Unknown]
